FAERS Safety Report 13429361 (Version 1)
Quarter: 2017Q2

REPORT INFORMATION
  Report Type: Spontaneous
  Country: US (occurrence: US)
  Receive Date: 20170411
  Receipt Date: 20170411
  Transmission Date: 20170830
  Serious: Yes (Other)
  Sender: FDA-Public Use
  Company Number: US-TAKEDA-2017MPI003027

PATIENT
  Sex: Female
  Weight: 59 kg

DRUGS (1)
  1. NINLARO [Suspect]
     Active Substance: IXAZOMIB
     Indication: PLASMA CELL MYELOMA
     Dosage: 4 MG, UNK
     Route: 048
     Dates: start: 20170206

REACTIONS (9)
  - Chronic kidney disease [Unknown]
  - Urinary tract infection [Unknown]
  - Headache [Unknown]
  - Muscle spasms [Unknown]
  - Feeling abnormal [Unknown]
  - Neck pain [Unknown]
  - Diarrhoea [Unknown]
  - White blood cell count decreased [Unknown]
  - Off label use [Unknown]
